FAERS Safety Report 21424036 (Version 2)
Quarter: 2023Q1

REPORT INFORMATION
  Report Type: Spontaneous
  Country: US (occurrence: US)
  Receive Date: 20221007
  Receipt Date: 20230102
  Transmission Date: 20230418
  Serious: Yes (Other)
  Sender: FDA-Public Use
  Company Number: US-BRISTOL-MYERS SQUIBB COMPANY-2022-114745

PATIENT
  Age: 89 Year
  Sex: Female

DRUGS (15)
  1. REVLIMID [Suspect]
     Active Substance: LENALIDOMIDE
     Indication: Plasma cell myeloma
     Dosage: TAKE 1 CAPSULE BY MOUTH EVERY DAY FOR 14 DAYS, THEN FOLLOWED BY 7 DAYS OFF
     Route: 048
     Dates: start: 20210316
  2. REVLIMID [Suspect]
     Active Substance: LENALIDOMIDE
     Route: 048
  3. TYLENOL [Concomitant]
     Active Substance: ACETAMINOPHEN
     Indication: Pain
     Route: 048
  4. ZOVIRAX [Concomitant]
     Active Substance: ACYCLOVIR
     Indication: Pain
     Dosage: DAILY ON MONDAY, WEDNESDAY AND FRIDAY
     Route: 048
  5. TENORMIN [Concomitant]
     Active Substance: ATENOLOL
     Indication: Pain
     Route: 048
  6. CELEBREX [Concomitant]
     Active Substance: CELECOXIB
     Indication: Pain
     Route: 048
  7. VITAMIN D3 [Concomitant]
     Active Substance: CHOLECALCIFEROL
     Indication: Pain
     Route: 048
  8. CELEBREX [Concomitant]
     Active Substance: CELECOXIB
     Indication: Pain
     Route: 048
  9. TOPROL XL [Concomitant]
     Active Substance: METOPROLOL SUCCINATE
     Indication: Pain
     Route: 048
  10. PRILOSEC [Concomitant]
     Active Substance: OMEPRAZOLE MAGNESIUM
     Indication: Pain
     Route: 048
  11. DELTASONE [Concomitant]
     Active Substance: PREDNISONE
     Indication: Pain
     Route: 048
  12. PREDNISONE [Concomitant]
     Active Substance: PREDNISONE
     Indication: Pain
     Route: 048
  13. TRAMADOL HCL [Concomitant]
     Active Substance: TRAMADOL HYDROCHLORIDE
     Indication: Pain
     Route: 048
  14. XARELTO [Concomitant]
     Active Substance: RIVAROXABAN
     Indication: Pain
     Route: 048
  15. PRO-BIOTIC BLEND [Concomitant]
     Indication: Pain
     Dosage: TAKE BY MOUTH DAILY
     Route: 048

REACTIONS (2)
  - Compression fracture [Unknown]
  - Off label use [Unknown]

NARRATIVE: CASE EVENT DATE: 20220902
